FAERS Safety Report 8053740-X (Version None)
Quarter: 2012Q1

REPORT INFORMATION
  Report Type: 
  Country: None (occurrence: None)
  Receive Date: 20120118
  Receipt Date: 20120111
  Transmission Date: 20120608
  Serious: Yes (Other)
  Sender: FDA-Public Use
  Company Number: MX-PFIZER INC-2012009677

PATIENT
  Age: 30 Year
  Sex: Female
  Weight: 48 kg

DRUGS (2)
  1. TYLENOL NO.1 FORTE [Concomitant]
     Indication: PAIN
     Dosage: UNK
     Route: 048
     Dates: start: 20111230
  2. VARENICLINE TARTRATE [Suspect]
     Indication: SMOKING CESSATION THERAPY
     Dosage: UNK
     Route: 048
     Dates: start: 20111201

REACTIONS (6)
  - VOMITING [None]
  - HEADACHE [None]
  - CONSTIPATION [None]
  - DIARRHOEA [None]
  - ARTHRALGIA [None]
  - GASTROINTESTINAL INFLAMMATION [None]
